FAERS Safety Report 20143633 (Version 1)
Quarter: 2021Q4

REPORT INFORMATION
  Report Type: Report from Study
  Country: US (occurrence: US)
  Receive Date: 20211203
  Receipt Date: 20211203
  Transmission Date: 20220303
  Serious: No
  Sender: FDA-Public Use
  Company Number: US-Ipsen Biopharmaceuticals, Inc.-2021-30228

PATIENT
  Age: 71 Year
  Sex: Female

DRUGS (1)
  1. SOMATULINE DEPOT [Suspect]
     Active Substance: LANREOTIDE ACETATE
     Indication: Carcinoid syndrome
     Dosage: 120MG, EVERY FOUR WEEKS, SUBCUTANEOUS
     Route: 058
     Dates: start: 2017

REACTIONS (2)
  - Injection site haemorrhage [Recovered/Resolved with Sequelae]
  - Drug ineffective [Unknown]
